FAERS Safety Report 4716654-6 (Version None)
Quarter: 2005Q3

REPORT INFORMATION
  Report Type: 
  Country: None (occurrence: None)
  Receive Date: 20050719
  Receipt Date: 20050624
  Transmission Date: 20060218
  Serious: Yes (Hospitalization)
  Sender: FDA-Public Use
  Company Number: 31038

PATIENT
  Age: 41 Year
  Sex: Male

DRUGS (2)
  1. CIPRO HC [Suspect]
     Dosage: 3 GTTS BID      EA
     Route: 001
     Dates: start: 20050221, end: 20050224
  2. CIPRODEX [Suspect]
     Dosage: EA
     Route: 001

REACTIONS (4)
  - BLOOD CHOLESTEROL INCREASED [None]
  - CHEST DISCOMFORT [None]
  - DYSARTHRIA [None]
  - LOSS OF CONSCIOUSNESS [None]
